FAERS Safety Report 14066547 (Version 1)
Quarter: 2017Q4

REPORT INFORMATION
  Report Type: Spontaneous
  Country: US (occurrence: US)
  Receive Date: 20171009
  Receipt Date: 20171009
  Transmission Date: 20180321
  Serious: No
  Sender: FDA-Public Use
  Company Number: US-BRISTOL-MYERS SQUIBB COMPANY-BMS-2017-090030

PATIENT
  Weight: 113.38 kg

DRUGS (1)
  1. ORENCIA [Suspect]
     Active Substance: ABATACEPT
     Indication: RHEUMATOID ARTHRITIS
     Dosage: 125 MG, QWK
     Route: 058
     Dates: start: 201709

REACTIONS (7)
  - Pain in extremity [Unknown]
  - Myalgia [Unknown]
  - Formication [Unknown]
  - Arthralgia [Unknown]
  - Muscle spasms [Unknown]
  - Hyperchlorhydria [Unknown]
  - Eye irritation [Unknown]
